FAERS Safety Report 5814622-4 (Version None)
Quarter: 2008Q3

REPORT INFORMATION
  Report Type: 
  Country: None (occurrence: None)
  Receive Date: 20080718
  Receipt Date: 20070615
  Transmission Date: 20090109
  Serious: No
  Sender: FDA-Public Use
  Company Number: US-KINGPHARMUSA00001-K200700753

PATIENT

DRUGS (3)
  1. LEVOXYL [Suspect]
     Indication: HYPOTHYROIDISM
     Dosage: 125 MCG, QD
     Route: 048
     Dates: start: 20050601, end: 20060901
  2. CARDIZEM [Concomitant]
     Route: 048
     Dates: start: 19970101
  3. ISOSORBIDE DINITRATE [Concomitant]
     Route: 048

REACTIONS (1)
  - RASH [None]
